FAERS Safety Report 6753773-7 (Version None)
Quarter: 2010Q2

REPORT INFORMATION
  Report Type: 
  Country: None (occurrence: None)
  Receive Date: 20100601
  Receipt Date: 20100514
  Transmission Date: 20101027
  Serious: Yes (Death)
  Sender: FDA-Public Use
  Company Number: AE 2010-086

PATIENT
  Age: 50 Year
  Sex: Male

DRUGS (1)
  1. FAZACLO ODT [Suspect]
     Indication: SCHIZOPHRENIA
     Dosage: 400MG DAILY PO
     Route: 048
     Dates: start: 20090903, end: 20100506

REACTIONS (3)
  - ADENOCARCINOMA [None]
  - GENERAL PHYSICAL HEALTH DETERIORATION [None]
  - THROAT CANCER [None]
